FAERS Safety Report 5082143-5 (Version None)
Quarter: 2006Q3

REPORT INFORMATION
  Report Type: 
  Country: None (occurrence: None)
  Receive Date: 20060817
  Receipt Date: 20060622
  Transmission Date: 20061208
  Serious: Yes (Other)
  Sender: FDA-Public Use
  Company Number: 2006UW13243

PATIENT

DRUGS (2)
  1. SENSORCAINE [Suspect]
  2. LIDOCAINE [Suspect]

REACTIONS (4)
  - HYPOTENSION [None]
  - INTUBATION [None]
  - MEDICATION ERROR [None]
  - WRONG DRUG ADMINISTERED [None]
